FAERS Safety Report 16777011 (Version 1)
Quarter: 2019Q4

REPORT INFORMATION
  Report Type: Spontaneous
  Country: US (occurrence: US)
  Receive Date: 20190905
  Receipt Date: 20190905
  Transmission Date: 20200122
  Serious: Yes (Hospitalization)
  Sender: FDA-Public Use
  Company Number: None

PATIENT
  Age: 58 Year
  Sex: Female
  Weight: 59.85 kg

DRUGS (2)
  1. DEPO-MEDROL [Suspect]
     Active Substance: METHYLPREDNISOLONE ACETATE
     Indication: ARTHRITIS
     Dosage: ?          OTHER FREQUENCY:ONCE;?
     Route: 014
     Dates: start: 20190903, end: 20190903
  2. LIDOCAINE 1% [Suspect]
     Active Substance: LIDOCAINE
     Indication: ARTHRITIS
     Dosage: ?          OTHER FREQUENCY:ONCE;?
     Route: 014
     Dates: start: 20190903, end: 20190903

REACTIONS (5)
  - Presyncope [None]
  - Post procedural complication [None]
  - Syncope [None]
  - Hypotension [None]
  - Paralysis [None]

NARRATIVE: CASE EVENT DATE: 20190903
